FAERS Safety Report 19844780 (Version 1)
Quarter: 2021Q3

REPORT INFORMATION
  Report Type: Spontaneous
  Country: LT (occurrence: LT)
  Receive Date: 20210917
  Receipt Date: 20210917
  Transmission Date: 20211014
  Serious: Yes (Hospitalization)
  Sender: FDA-Public Use
  Company Number: LT-TOPROL-2021000195

PATIENT
  Age: 50 Year
  Sex: Male

DRUGS (7)
  1. RAMIPRIL. [Suspect]
     Active Substance: RAMIPRIL
     Route: 065
  2. MILDRONATE [Suspect]
     Active Substance: MELDONIUM
     Route: 065
  3. SPIRONOLACTONE. [Suspect]
     Active Substance: SPIRONOLACTONE
     Route: 065
  4. UNSPECIFIED METOPROLOL SUCCINATE [Suspect]
     Active Substance: METOPROLOL SUCCINATE
     Dosage: BID
     Route: 048
  5. AMIODARONE [Suspect]
     Active Substance: AMIODARONE
     Route: 065
  6. TORASEMIDE [Suspect]
     Active Substance: TORSEMIDE
     Route: 065
  7. WARFARIN [Suspect]
     Active Substance: WARFARIN
     Dosage: ACCORDING TO SPA, INR
     Route: 065

REACTIONS (4)
  - Chest pain [Unknown]
  - Dyspnoea exertional [Unknown]
  - Inappropriate schedule of product administration [Unknown]
  - Product use in unapproved indication [Unknown]

NARRATIVE: CASE EVENT DATE: 20201203
